FAERS Safety Report 7937239 (Version 2)
Quarter: 2013Q3

REPORT INFORMATION
  Report Type: Spontaneous
  Country: US (occurrence: US)
  Receive Date: 20110509
  Receipt Date: 20130709
  Transmission Date: 20140515
  Serious: Yes (Hospitalization, Other)
  Sender: FDA-Public Use
  Company Number: US-ASTRAZENECA-2011SE25094

PATIENT
  Age: 46 Year
  Sex: Male
  Weight: 79.8 kg

DRUGS (18)
  1. SEROQUEL XR [Suspect]
     Indication: BIPOLAR DISORDER
     Route: 048
     Dates: start: 201006
  2. SEROQUEL XR [Suspect]
     Indication: BIPOLAR DISORDER
     Route: 048
     Dates: start: 201006
  3. SEROQUEL XR [Suspect]
     Indication: BIPOLAR DISORDER
     Route: 048
  4. SEROQUEL XR [Suspect]
     Indication: BIPOLAR DISORDER
     Route: 048
  5. SEROQUEL XR [Suspect]
     Indication: BIPOLAR DISORDER
     Route: 048
     Dates: start: 201004, end: 201008
  6. SEROQUEL XR [Suspect]
     Indication: BIPOLAR DISORDER
     Route: 048
     Dates: start: 201004, end: 201008
  7. SEROQUEL XR [Suspect]
     Indication: BIPOLAR DISORDER
     Route: 048
     Dates: start: 201008
  8. SEROQUEL XR [Suspect]
     Indication: BIPOLAR DISORDER
     Route: 048
     Dates: start: 201008
  9. RESTORIL [Concomitant]
  10. KLONOPIN [Concomitant]
  11. CELEXA [Concomitant]
  12. LAMICTAL [Concomitant]
     Indication: NIGHTMARE
  13. LAMICTAL [Concomitant]
     Indication: BIPOLAR DISORDER
  14. XANAX [Concomitant]
     Indication: ANXIETY
  15. ZOLOFT [Concomitant]
  16. ADVAIR [Concomitant]
     Indication: CHRONIC OBSTRUCTIVE PULMONARY DISEASE
     Dosage: 250/ 50 BID
  17. IPRATROPIUM [Concomitant]
     Indication: PULMONARY CONGESTION
  18. ALBUTEROL [Concomitant]
     Dosage: 3 MILLILITRES DAILY, AS NEEDED

REACTIONS (22)
  - Bipolar I disorder [Unknown]
  - Suicidal ideation [Unknown]
  - Homicidal ideation [Unknown]
  - Dehydration [Unknown]
  - Hallucination, auditory [Unknown]
  - Violence-related symptom [Unknown]
  - Mental impairment [Unknown]
  - Anger [Unknown]
  - Memory impairment [Unknown]
  - Social avoidant behaviour [Unknown]
  - Panic attack [Unknown]
  - Chest pain [Unknown]
  - Feeling abnormal [Unknown]
  - Chronic obstructive pulmonary disease [Unknown]
  - Emphysema [Unknown]
  - Bronchitis chronic [Unknown]
  - Anxiety [Unknown]
  - Nightmare [Unknown]
  - Drug withdrawal syndrome [Unknown]
  - Drug ineffective [Unknown]
  - Bipolar disorder [Unknown]
  - Drug dose omission [Unknown]
